FAERS Safety Report 10472507 (Version 6)
Quarter: 2015Q4

REPORT INFORMATION
  Report Type: Report from Study
  Country: CA (occurrence: CA)
  Receive Date: 20140924
  Receipt Date: 20151116
  Transmission Date: 20160304
  Serious: Yes (Hospitalization, Other)
  Sender: FDA-Public Use
  Company Number: PHHY2012CA033545

PATIENT
  Age: 62 Year
  Sex: Male

DRUGS (2)
  1. SANDOSTATIN LAR DEPOT [Suspect]
     Active Substance: OCTREOTIDE ACETATE
     Indication: PANCREATITIS CHRONIC
     Dosage: 30 MG, EVERY 3 WEEKS
     Route: 030
     Dates: start: 20111006
  2. SANDOSTATIN LAR DEPOT [Suspect]
     Active Substance: OCTREOTIDE ACETATE
     Dosage: 40 MG, EVERY 3 WEEKS
     Route: 030

REACTIONS (11)
  - Weight decreased [Unknown]
  - Malaise [Unknown]
  - Lung disorder [Unknown]
  - Cardiac disorder [Unknown]
  - Pancreatic neoplasm [Unknown]
  - Blood pressure increased [Unknown]
  - Bronchitis [Unknown]
  - Secretion discharge [Unknown]
  - Diarrhoea [Unknown]
  - Abdominal pain upper [Unknown]
  - Product use issue [Unknown]

NARRATIVE: CASE EVENT DATE: 20130502
